FAERS Safety Report 24289515 (Version 1)
Quarter: 2024Q3

REPORT INFORMATION
  Report Type: Spontaneous
  Country: GB (occurrence: GB)
  Receive Date: 20240906
  Receipt Date: 20240906
  Transmission Date: 20241016
  Serious: Yes (Disabling, Other)
  Sender: CELLTRION
  Company Number: None

PATIENT

DRUGS (1)
  1. YUFLYMA [Suspect]
     Active Substance: ADALIMUMAB-AATY
     Indication: Rheumatoid arthritis
     Dosage: 40MG A FORTNIGHT
     Dates: start: 20240331, end: 20240704

REACTIONS (1)
  - Bone pain [Recovered/Resolved]

NARRATIVE: CASE EVENT DATE: 20240331
